FAERS Safety Report 23796082 (Version 1)
Quarter: 2024Q2

REPORT INFORMATION
  Report Type: Report from Study
  Country: GR (occurrence: GR)
  Receive Date: 20240429
  Receipt Date: 20240429
  Transmission Date: 20240716
  Serious: Yes (Other)
  Sender: FDA-Public Use
  Company Number: GR-CELLTRION INC.-2024GR009724

PATIENT

DRUGS (1)
  1. INFLIXIMAB [Suspect]
     Active Substance: INFLIXIMAB
     Indication: Crohn^s disease
     Dosage: 400 MG, EVERY 8 WEEK
     Route: 042
     Dates: start: 2018

REACTIONS (4)
  - Intestinal stenosis [Unknown]
  - Streptococcal infection [Recovering/Resolving]
  - Incorrect dose administered [Unknown]
  - Overdose [Unknown]
